FAERS Safety Report 10539262 (Version 2)
Quarter: 2014Q4

REPORT INFORMATION
  Report Type: Spontaneous
  Country: DK (occurrence: DK)
  Receive Date: 20141023
  Receipt Date: 20141023
  Transmission Date: 20150529
  Serious: Yes (Other)
  Sender: FDA-Public Use
  Company Number: DK-009507513-1309DNK003469

PATIENT
  Age: 62 Year
  Sex: Female

DRUGS (3)
  1. IMUREL [Concomitant]
     Active Substance: AZATHIOPRINE SODIUM
     Indication: LIVER TRANSPLANT
  2. FOSAMAX [Suspect]
     Active Substance: ALENDRONATE SODIUM
     Indication: OSTEOPOROSIS
     Dosage: STYRKE: 70 MG
     Route: 048
     Dates: start: 1993, end: 2011
  3. PREDNISOLON [Concomitant]
     Active Substance: PREDNISOLONE
     Dosage: 5 MG, QD
     Dates: start: 2005, end: 2007

REACTIONS (8)
  - Exposed bone in jaw [Unknown]
  - Pain [Unknown]
  - Swelling [Unknown]
  - Sequestrectomy [Unknown]
  - Osteonecrosis of jaw [Recovered/Resolved]
  - Debridement [Unknown]
  - Infection [Unknown]
  - Dental fistula [Unknown]

NARRATIVE: CASE EVENT DATE: 20111209
